FAERS Safety Report 8104530-0 (Version None)
Quarter: 2012Q1

REPORT INFORMATION
  Report Type: 
  Country: None (occurrence: None)
  Receive Date: 20120201
  Receipt Date: 20111229
  Transmission Date: 20120608
  Serious: Yes (Hospitalization)
  Sender: FDA-Public Use
  Company Number: IL-MERCK-1112USA01824

PATIENT
  Age: 77 Year
  Sex: Male

DRUGS (5)
  1. JANUMET [Suspect]
     Indication: DIABETES MELLITUS
     Route: 048
     Dates: start: 20111201, end: 20111205
  2. ASPIRIN [Concomitant]
     Route: 048
  3. ZOCOR [Concomitant]
     Route: 048
     Dates: end: 20111205
  4. AVANDAMET [Concomitant]
     Route: 048
     Dates: end: 20111205
  5. GLUCOPHAGE [Concomitant]
     Route: 048
     Dates: end: 20111205

REACTIONS (2)
  - CONFUSIONAL STATE [None]
  - MUSCULAR WEAKNESS [None]
